FAERS Safety Report 20794914 (Version 1)
Quarter: 2022Q2

REPORT INFORMATION
  Report Type: Spontaneous
  Country: US (occurrence: None)
  Receive Date: 20220505
  Receipt Date: 20220505
  Transmission Date: 20220721
  Serious: Yes (Hospitalization)
  Sender: FDA-Public Use
  Company Number: None

PATIENT
  Age: 84 Year
  Sex: Female
  Weight: 43.2 kg

DRUGS (1)
  1. WARFARIN [Suspect]
     Active Substance: WARFARIN
     Dosage: FREQUENCY : DAILY;?
     Route: 048

REACTIONS (2)
  - Subdural haematoma [None]
  - Hip surgery [None]

NARRATIVE: CASE EVENT DATE: 20210318
